FAERS Safety Report 5707247-2 (Version None)
Quarter: 2008Q2

REPORT INFORMATION
  Report Type: 
  Country: None (occurrence: None)
  Receive Date: 20080416
  Receipt Date: 20080407
  Transmission Date: 20081010
  Serious: Yes (Hospitalization)
  Sender: FDA-Public Use
  Company Number: JP-SANOFI-SYNTHELABO-A01200801183

PATIENT
  Age: 81 Year
  Sex: Female

DRUGS (3)
  1. ARGATROBAN [Concomitant]
     Indication: CEREBRAL INFARCTION
     Route: 042
     Dates: start: 20080109, end: 20080116
  2. EDARAVONE [Concomitant]
     Indication: CEREBRAL INFARCTION
     Route: 042
     Dates: start: 20080109, end: 20080118
  3. PLAVIX [Suspect]
     Indication: CEREBRAL INFARCTION
     Route: 048
     Dates: start: 20080111, end: 20080120

REACTIONS (2)
  - HYPERBILIRUBINAEMIA [None]
  - JAUNDICE [None]
